FAERS Safety Report 11097574 (Version 1)
Quarter: 2015Q2

REPORT INFORMATION
  Report Type: Spontaneous
  Country: US (occurrence: None)
  Receive Date: 20150507
  Receipt Date: 20150507
  Transmission Date: 20150821
  Serious: Yes (Other)
  Sender: FDA-Public Use
  Company Number: None

PATIENT
  Age: 45 Year
  Sex: Female

DRUGS (1)
  1. ACTHAR [Suspect]
     Active Substance: CORTICOTROPIN
     Indication: PSORIATIC ARTHROPATHY
     Dosage: 80-UNITS TWICE WEEKLY SUB-Q
     Route: 058
     Dates: start: 20150324, end: 20150330

REACTIONS (4)
  - Depression [None]
  - Anxiety [None]
  - Therapy cessation [None]
  - Erythema [None]

NARRATIVE: CASE EVENT DATE: 20150330
